FAERS Safety Report 5216486-9 (Version None)
Quarter: 2006Q4

REPORT INFORMATION
  Report Type: 
  Country: None (occurrence: None)
  Receive Date: 20061129
  Receipt Date: 20051005
  Transmission Date: 20070319
  Serious: No
  Sender: FDA-Public Use
  Company Number: 2005UW13534

PATIENT
  Age: 48 Year
  Sex: Female
  Weight: 102.5129 kg

DRUGS (7)
  1. FASLODEX [Suspect]
     Indication: BREAST CANCER METASTATIC
     Dosage: 500 MG Q4WK IM
     Route: 030
     Dates: start: 20020627, end: 20050915
  2. POTASSIUM ACETATE [Concomitant]
  3. NORVASC [Concomitant]
  4. PREVACID [Concomitant]
  5. HERCEPTIN [Concomitant]
  6. ZOMETA [Concomitant]
  7. ARANESP [Concomitant]

REACTIONS (2)
  - DIZZINESS [None]
  - DYSPNOEA [None]
